FAERS Safety Report 4424035-8 (Version None)
Quarter: 2004Q3

REPORT INFORMATION
  Report Type: 
  Country: None (occurrence: None)
  Receive Date: 20040805
  Receipt Date: 20040803
  Transmission Date: 20050211
  Serious: Yes (Other)
  Sender: FDA-Public Use
  Company Number: HQWYE703104MAY04

PATIENT
  Age: 34 Year
  Sex: Female

DRUGS (1)
  1. NEOGYNON (LEVONORGESTREL/ETHINYL ESTRADIOL, TABLET) [Suspect]
     Indication: MENORRHAGIA
     Dosage: ORAL
     Route: 048
     Dates: start: 20040408, end: 20040423

REACTIONS (7)
  - ALANINE AMINOTRANSFERASE INCREASED [None]
  - ARRHYTHMIA [None]
  - ASPARTATE AMINOTRANSFERASE INCREASED [None]
  - FEELING ABNORMAL [None]
  - IRON DEFICIENCY [None]
  - PLATELET COUNT INCREASED [None]
  - RED BLOOD CELL SEDIMENTATION RATE INCREASED [None]
